FAERS Safety Report 18285847 (Version 4)
Quarter: 2020Q4

REPORT INFORMATION
  Report Type: Spontaneous
  Country: BR (occurrence: BR)
  Receive Date: 20200919
  Receipt Date: 20201222
  Transmission Date: 20210113
  Serious: Yes (Other)
  Sender: FDA-Public Use
  Company Number: NVSC2020BR252729

PATIENT
  Age: 15 Year
  Sex: Male

DRUGS (1)
  1. TRILEPTAL [Suspect]
     Active Substance: OXCARBAZEPINE
     Indication: SEIZURE
     Dosage: 1 DF, Q12H, 7 YEARS AGO
     Route: 065

REACTIONS (3)
  - Product contamination physical [Unknown]
  - Autism spectrum disorder [Unknown]
  - Choking [Unknown]
